FAERS Safety Report 14227708 (Version 1)
Quarter: 2017Q4

REPORT INFORMATION
  Report Type: Spontaneous
  Country: US (occurrence: US)
  Receive Date: 20171127
  Receipt Date: 20171127
  Transmission Date: 20180321
  Serious: No
  Sender: FDA-Public Use
  Company Number: US-BIOGEN-2017BI00486480

PATIENT
  Age: -2 Year
  Sex: Female

DRUGS (1)
  1. PLEGRIDY [Suspect]
     Active Substance: PEGINTERFERON BETA-1A
     Indication: MULTIPLE SCLEROSIS
     Route: 065
     Dates: start: 20141105, end: 20141110

REACTIONS (2)
  - White blood cell count abnormal [Recovered/Resolved]
  - Red blood cell count abnormal [Recovered/Resolved]

NARRATIVE: CASE EVENT DATE: 20141105
